FAERS Safety Report 6697086-0 (Version None)
Quarter: 2010Q2

REPORT INFORMATION
  Report Type: 
  Country: None (occurrence: None)
  Receive Date: 20100422
  Receipt Date: 20100413
  Transmission Date: 20101027
  Serious: Yes (Hospitalization)
  Sender: FDA-Public Use
  Company Number: 2008JP003598

PATIENT
  Age: 41 Year
  Sex: Female

DRUGS (30)
  1. TACROLIMUS [Suspect]
     Indication: LUPUS NEPHRITIS
     Dosage: 3 MG, ORAL, 1.5 MG, ORAL, 3 MG, ORAL 2.5 MG, ORAL , 3 MG ORAL
     Route: 048
     Dates: start: 20071128, end: 20080108
  2. TACROLIMUS [Suspect]
     Indication: LUPUS NEPHRITIS
     Dosage: 3 MG, ORAL, 1.5 MG, ORAL, 3 MG, ORAL 2.5 MG, ORAL , 3 MG ORAL
     Route: 048
     Dates: start: 20080109, end: 20080205
  3. TACROLIMUS [Suspect]
     Indication: LUPUS NEPHRITIS
     Dosage: 3 MG, ORAL, 1.5 MG, ORAL, 3 MG, ORAL 2.5 MG, ORAL , 3 MG ORAL
     Route: 048
     Dates: start: 20080206, end: 20080304
  4. TACROLIMUS [Suspect]
     Indication: LUPUS NEPHRITIS
     Dosage: 3 MG, ORAL, 1.5 MG, ORAL, 3 MG, ORAL 2.5 MG, ORAL , 3 MG ORAL
     Route: 048
     Dates: start: 20080305, end: 20080401
  5. TACROLIMUS [Suspect]
     Indication: LUPUS NEPHRITIS
     Dosage: 3 MG, ORAL, 1.5 MG, ORAL, 3 MG, ORAL 2.5 MG, ORAL , 3 MG ORAL
     Route: 048
     Dates: start: 20080416, end: 20080527
  6. TACROLIMUS [Suspect]
     Indication: LUPUS NEPHRITIS
     Dosage: 3 MG, ORAL, 1.5 MG, ORAL, 3 MG, ORAL 2.5 MG, ORAL , 3 MG ORAL
     Route: 048
     Dates: start: 20080528, end: 20090709
  7. TACROLIMUS [Suspect]
     Indication: LUPUS NEPHRITIS
     Dosage: 3 MG, ORAL, 1.5 MG, ORAL, 3 MG, ORAL 2.5 MG, ORAL , 3 MG ORAL
     Route: 048
     Dates: start: 20090731
  8. PREDNISOLONE [Suspect]
     Indication: LUPUS NEPHRITIS
     Dosage: 20 MG, ORAL, 30MG, ORAL, 25 MG, ORAL, 17.5 MG ORAL, 15 MG, ORAL, 13 MG, ORAL, 12 MG, ORAL
     Dates: start: 20071128, end: 20080109
  9. PREDNISOLONE [Suspect]
     Indication: LUPUS NEPHRITIS
     Dosage: 20 MG, ORAL, 30MG, ORAL, 25 MG, ORAL, 17.5 MG ORAL, 15 MG, ORAL, 13 MG, ORAL, 12 MG, ORAL
     Dates: start: 20080110, end: 20080206
  10. PREDNISOLONE [Suspect]
     Indication: LUPUS NEPHRITIS
     Dosage: 20 MG, ORAL, 30MG, ORAL, 25 MG, ORAL, 17.5 MG ORAL, 15 MG, ORAL, 13 MG, ORAL, 12 MG, ORAL
     Dates: start: 20080207, end: 20080305
  11. PREDNISOLONE [Suspect]
     Indication: LUPUS NEPHRITIS
     Dosage: 20 MG, ORAL, 30MG, ORAL, 25 MG, ORAL, 17.5 MG ORAL, 15 MG, ORAL, 13 MG, ORAL, 12 MG, ORAL
     Dates: start: 20080306, end: 20080528
  12. PREDNISOLONE [Suspect]
     Indication: LUPUS NEPHRITIS
     Dosage: 20 MG, ORAL, 30MG, ORAL, 25 MG, ORAL, 17.5 MG ORAL, 15 MG, ORAL, 13 MG, ORAL, 12 MG, ORAL
     Dates: start: 20080529, end: 20080818
  13. PREDNISOLONE [Suspect]
     Indication: LUPUS NEPHRITIS
     Dosage: 20 MG, ORAL, 30MG, ORAL, 25 MG, ORAL, 17.5 MG ORAL, 15 MG, ORAL, 13 MG, ORAL, 12 MG, ORAL
     Dates: start: 20080819, end: 20090313
  14. PREDNISOLONE [Suspect]
     Indication: LUPUS NEPHRITIS
     Dosage: 20 MG, ORAL, 30MG, ORAL, 25 MG, ORAL, 17.5 MG ORAL, 15 MG, ORAL, 13 MG, ORAL, 12 MG, ORAL
     Dates: start: 20090314, end: 20091023
  15. PREDNISOLONE [Suspect]
     Indication: LUPUS NEPHRITIS
     Dosage: 20 MG, ORAL, 30MG, ORAL, 25 MG, ORAL, 17.5 MG ORAL, 15 MG, ORAL, 13 MG, ORAL, 12 MG, ORAL
     Dates: start: 20091024
  16. CANDESARTAN CILEXETIL [Concomitant]
  17. COTRIM [Concomitant]
  18. LIPITOR [Concomitant]
  19. LANSOPRAZOLE [Concomitant]
  20. ROCALTROL [Concomitant]
  21. FOSAMAC (ALENDRONATE SODIUM) [Concomitant]
  22. LOXONIN (LOXOPROFEN SODIUM) [Concomitant]
  23. DEPAKENE [Concomitant]
  24. PAXIL [Concomitant]
  25. DEPAS (ETIZOLAM) [Concomitant]
  26. FERROMIA (FERROUS SODIUM CITRATE) [Concomitant]
  27. URSO 250 [Concomitant]
  28. SERTRALINE HYDROCHLORIDE [Concomitant]
  29. TOFRANIL [Concomitant]
  30. LENDORM [Concomitant]

REACTIONS (9)
  - ANAEMIA [None]
  - BILIARY CIRRHOSIS PRIMARY [None]
  - CONDITION AGGRAVATED [None]
  - DIABETES MELLITUS [None]
  - DYSMENORRHOEA [None]
  - FEMORAL NECK FRACTURE [None]
  - HYPERLIPIDAEMIA [None]
  - INJURY [None]
  - LEUKOCYTOSIS [None]
